FAERS Safety Report 4353834-6 (Version None)
Quarter: 2004Q2

REPORT INFORMATION
  Report Type: 
  Country: None (occurrence: None)
  Receive Date: 20040430
  Receipt Date: 20040326
  Transmission Date: 20050107
  Serious: Yes (Other)
  Sender: FDA-Public Use
  Company Number: JP-JNJFOC-20040405438

PATIENT
  Age: 28 Year
  Sex: Female
  Weight: 43 kg

DRUGS (9)
  1. REMICADE [Suspect]
     Indication: CROHN'S DISEASE
     Dosage: SEE IMAGE
     Route: 041
     Dates: start: 20020723, end: 20020723
  2. REMICADE [Suspect]
     Indication: CROHN'S DISEASE
     Dosage: SEE IMAGE
     Route: 041
     Dates: start: 20031226, end: 20031226
  3. REMICADE [Suspect]
     Indication: CROHN'S DISEASE
     Dosage: SEE IMAGE
     Route: 041
     Dates: start: 20040109, end: 20040109
  4. PENTASA [Concomitant]
  5. SALAZOPYRIN (SULFASALAZINE) TABLETS [Concomitant]
  6. DAIKENCHUTO (ALL OTHER THERAPEUTIC PRODUCTS) POWDER [Concomitant]
  7. GASTER (FAMOTIDINE) TABLETS [Concomitant]
  8. TOTAL PARENTERAL NUTRITION (POLYVINYL ALCOHOL) [Concomitant]
  9. ENTERAL NUTRITION (SOLUTIONS FOR PARENTERAL NUTRITION) [Concomitant]

REACTIONS (5)
  - BACTERAEMIA [None]
  - CATHETER RELATED INFECTION [None]
  - LETHARGY [None]
  - SEPSIS [None]
  - STAPHYLOCOCCAL INFECTION [None]
